FAERS Safety Report 8153273-6 (Version None)
Quarter: 2012Q1

REPORT INFORMATION
  Report Type: 
  Country: None (occurrence: None)
  Receive Date: 20120215
  Receipt Date: 20120131
  Transmission Date: 20120608
  Serious: Yes (Hospitalization)
  Sender: FDA-Public Use
  Company Number: JPI-P-019354

PATIENT
  Age: 49 Year
  Sex: Female

DRUGS (10)
  1. XYREM [Suspect]
     Indication: NARCOLEPSY
     Dosage: ORAL
     Route: 048
     Dates: start: 20101014
  2. VALPROIC ACID [Concomitant]
  3. ALBUTEROL [Concomitant]
  4. GABAPENTIN [Concomitant]
  5. FLUTICASONE PROPIONATE/ SALMETEROL XINAFOATE [Concomitant]
  6. PANTOPRAZOLE [Concomitant]
  7. ROSUVASTATIN CALCIUM [Concomitant]
  8. LEVOTHYROXINE SODIUM [Concomitant]
  9. RANOLAZINE [Concomitant]
  10. PAROXETINE [Concomitant]

REACTIONS (4)
  - ASTHMA [None]
  - CONDITION AGGRAVATED [None]
  - PRODUCTIVE COUGH [None]
  - RESPIRATORY DISTRESS [None]
